FAERS Safety Report 9675458 (Version 2)
Quarter: 2013Q4

REPORT INFORMATION
  Report Type: Spontaneous
  Country: JP (occurrence: None)
  Receive Date: 20131105
  Receipt Date: 20131231
  Transmission Date: 20140711
  Serious: Yes (Life-Threatening, Hospitalization)
  Sender: FDA-Public Use
  Company Number: ABR_01219_2013

PATIENT
  Age: 72 Year
  Sex: Male

DRUGS (8)
  1. GLIADEL [Suspect]
     Indication: MALIGNANT GLIOMA
     Dosage: (INTRACEREBRAL)
     Dates: start: 20130902, end: 20130902
  2. TEMODAL [Concomitant]
  3. BAKTAR [Concomitant]
  4. TAKEPRON [Concomitant]
  5. E KEPPRA [Concomitant]
  6. JANUVIA [Concomitant]
  7. CRESTOR [Concomitant]
  8. AMLODIN [Concomitant]

REACTIONS (4)
  - Convulsion [None]
  - Rash [None]
  - Status epilepticus [None]
  - Pneumonia [None]
